FAERS Safety Report 4899975-6 (Version None)
Quarter: 2006Q1

REPORT INFORMATION
  Report Type: 
  Country: None (occurrence: None)
  Receive Date: 20060131
  Receipt Date: 20060120
  Transmission Date: 20060701
  Serious: Yes (Hospitalization)
  Sender: FDA-Public Use
  Company Number: 2005162777

PATIENT
  Age: 12 Year
  Sex: Male
  Weight: 21.7727 kg

DRUGS (3)
  1. GENOTROPIN [Suspect]
     Indication: HYPOPITUITARISM
     Dosage: 1 MG (1 MG, DAILY),
     Dates: start: 20050101
  2. ADDERALL 10 [Concomitant]
  3. ZYRTEC [Concomitant]

REACTIONS (5)
  - CREPITATIONS [None]
  - NASOPHARYNGITIS [None]
  - PYREXIA [None]
  - WEIGHT INCREASED [None]
  - WHEEZING [None]
